FAERS Safety Report 24551856 (Version 1)
Quarter: 2024Q4

REPORT INFORMATION
  Report Type: Report from Study
  Country: PK (occurrence: PK)
  Receive Date: 20241026
  Receipt Date: 20241026
  Transmission Date: 20250114
  Serious: Yes (Other)
  Sender: ROCHE
  Company Number: PK-ROCHE-10000115917

PATIENT
  Age: 50 Year
  Sex: Female

DRUGS (1)
  1. HERCEPTIN [Suspect]
     Active Substance: TRASTUZUMAB
     Indication: Breast cancer
     Route: 042
     Dates: start: 20240626

REACTIONS (1)
  - Breast operation [Unknown]

NARRATIVE: CASE EVENT DATE: 20240830
